FAERS Safety Report 24729121 (Version 2)
Quarter: 2024Q4

REPORT INFORMATION
  Report Type: Spontaneous
  Country: US (occurrence: US)
  Receive Date: 20241213
  Receipt Date: 20241220
  Transmission Date: 20250114
  Serious: No
  Sender: ROCHE
  Company Number: US-ROCHE-10000152800

PATIENT
  Age: 57 Year
  Sex: Female

DRUGS (3)
  1. ACTEMRA ACTPEN [Suspect]
     Active Substance: TOCILIZUMAB
     Indication: Product used for unknown indication
     Route: 058
     Dates: start: 202408
  2. ACTEMRA ACTPEN [Suspect]
     Active Substance: TOCILIZUMAB
     Dosage: ONGOING
     Route: 065
     Dates: start: 202409
  3. ACTEMRA ACTPEN [Suspect]
     Active Substance: TOCILIZUMAB
     Route: 065

REACTIONS (9)
  - Accidental exposure to product [Unknown]
  - Device malfunction [Unknown]
  - Device malfunction [Unknown]
  - Device issue [Unknown]
  - Wrong technique in product usage process [Unknown]
  - Ill-defined disorder [Unknown]
  - Contusion [Recovered/Resolved]
  - Device issue [Unknown]
  - Product complaint [Unknown]

NARRATIVE: CASE EVENT DATE: 20241203
